FAERS Safety Report 4386652-3 (Version None)
Quarter: 2004Q2

REPORT INFORMATION
  Report Type: 
  Country: None (occurrence: None)
  Receive Date: 20040623
  Receipt Date: 20040611
  Transmission Date: 20050107
  Serious: Yes (Death)
  Sender: FDA-Public Use
  Company Number: 163-20785-03070302

PATIENT
  Age: 67 Year
  Sex: Male

DRUGS (2)
  1. THALOMID [Suspect]
     Indication: METASTATIC MALIGNANT MELANOMA
     Dosage: 200 MG, QD, ORAL
     Route: 048
     Dates: start: 20020924, end: 20030606
  2. TEMOZOLOMIDE (TEMOZOLOMIDE) [Concomitant]

REACTIONS (2)
  - MALIGNANT MELANOMA [None]
  - MALIGNANT NEOPLASM PROGRESSION [None]
